FAERS Safety Report 13913658 (Version 1)
Quarter: 2017Q3

REPORT INFORMATION
  Report Type: Spontaneous
  Country: SE (occurrence: SE)
  Receive Date: 20170829
  Receipt Date: 20170829
  Transmission Date: 20171127
  Serious: Yes (Hospitalization)
  Sender: FDA-Public Use
  Company Number: SE-CONCORDIA PHARMACEUTICALS INC.-GSH201708-004856

PATIENT
  Age: 67 Year
  Sex: Female

DRUGS (5)
  1. PREDNISOLONE. [Suspect]
     Active Substance: PREDNISOLONE
  2. DOXORUBICIN [Suspect]
     Active Substance: DOXORUBICIN
  3. METHOTREXATE DISODIUM INTRATHECAL [Suspect]
     Active Substance: METHOTREXATE SODIUM
     Route: 037
  4. CYCLOPHOSPHAMIDE (ANHYDROUS) [Suspect]
     Active Substance: CYCLOPHOSPHAMIDE
  5. VINCRISTINE [Suspect]
     Active Substance: VINCRISTINE

REACTIONS (3)
  - Agranulocytosis [Unknown]
  - Pyrexia [Unknown]
  - Fatigue [Unknown]
